FAERS Safety Report 25725598 (Version 1)
Quarter: 2025Q3

REPORT INFORMATION
  Report Type: Spontaneous
  Country: EU (occurrence: EU)
  Receive Date: 20250826
  Receipt Date: 20250826
  Transmission Date: 20251020
  Serious: Yes (Hospitalization)
  Sender: CHEPLAPHARM
  Company Number: EU-CHEPLA-2025010149

PATIENT
  Age: 64 Year
  Sex: Male

DRUGS (19)
  1. DOXORUBICIN [Suspect]
     Active Substance: DOXORUBICIN
     Indication: Extranodal marginal zone B-cell lymphoma (MALT type)
  2. PREDNISONE [Suspect]
     Active Substance: PREDNISONE
     Indication: Extranodal marginal zone B-cell lymphoma (MALT type)
  3. CAPECITABINE [Suspect]
     Active Substance: CAPECITABINE
     Indication: Metastases to bone
     Dates: start: 202112
  4. CAPECITABINE [Suspect]
     Active Substance: CAPECITABINE
     Indication: Adenocarcinoma gastric
     Dates: start: 202112
  5. CAPECITABINE [Suspect]
     Active Substance: CAPECITABINE
     Indication: Metastases to lymph nodes
     Dates: start: 202112
  6. CAPECITABINE [Suspect]
     Active Substance: CAPECITABINE
     Indication: Metastases to bone
     Dates: start: 202203
  7. CAPECITABINE [Suspect]
     Active Substance: CAPECITABINE
     Indication: Adenocarcinoma gastric
     Dates: start: 202203
  8. CAPECITABINE [Suspect]
     Active Substance: CAPECITABINE
     Indication: Metastases to lymph nodes
     Dates: start: 202203
  9. CAPECITABINE [Suspect]
     Active Substance: CAPECITABINE
     Indication: Metastases to bone
     Dates: end: 201806
  10. CAPECITABINE [Suspect]
     Active Substance: CAPECITABINE
     Indication: Adenocarcinoma gastric
     Dates: end: 201806
  11. CAPECITABINE [Suspect]
     Active Substance: CAPECITABINE
     Indication: Metastases to lymph nodes
     Dates: end: 201806
  12. RITUXIMAB [Suspect]
     Active Substance: RITUXIMAB
     Indication: Extranodal marginal zone B-cell lymphoma (MALT type)
  13. CYCLOPHOSPHAMIDE [Suspect]
     Active Substance: CYCLOPHOSPHAMIDE
     Indication: Extranodal marginal zone B-cell lymphoma (MALT type)
  14. VINCRISTINE [Suspect]
     Active Substance: VINCRISTINE
     Indication: Extranodal marginal zone B-cell lymphoma (MALT type)
  15. OXALIPLATIN [Suspect]
     Active Substance: OXALIPLATIN
     Indication: Adenocarcinoma gastric
     Dates: end: 201806
  16. IRINOTECAN [Suspect]
     Active Substance: IRINOTECAN
     Indication: Metastases to lymph nodes
     Dates: start: 202112
  17. IRINOTECAN [Suspect]
     Active Substance: IRINOTECAN
     Indication: Metastases to bone
     Dates: start: 202112
  18. IRINOTECAN [Suspect]
     Active Substance: IRINOTECAN
     Indication: Metastases to lymph nodes
     Dates: start: 202203
  19. IRINOTECAN [Suspect]
     Active Substance: IRINOTECAN
     Indication: Metastases to bone
     Dates: start: 202203

REACTIONS (2)
  - Peripheral ischaemia [Not Recovered/Not Resolved]
  - Off label use [Unknown]

NARRATIVE: CASE EVENT DATE: 20220301
